FAERS Safety Report 4853434-5 (Version None)
Quarter: 2005Q4

REPORT INFORMATION
  Report Type: 
  Country: None (occurrence: None)
  Receive Date: 20051214
  Receipt Date: 20050401
  Transmission Date: 20060501
  Serious: Yes (Life-Threatening, Hospitalization, Other)
  Sender: FDA-Public Use
  Company Number: PHBS2005VE04551

PATIENT
  Age: 38 Year
  Sex: Male

DRUGS (1)
  1. GLEEVEC [Suspect]
     Indication: CHRONIC MYELOID LEUKAEMIA
     Dosage: 400 MG/DAY
     Route: 048
     Dates: start: 20020520, end: 20050314

REACTIONS (5)
  - ALVEOLAR PROTEINOSIS [None]
  - PNEUMONIA [None]
  - PNEUMONITIS [None]
  - PULMONARY OEDEMA [None]
  - RESPIRATORY FAILURE [None]
